FAERS Safety Report 18627476 (Version 1)
Quarter: 2020Q4

REPORT INFORMATION
  Report Type: Spontaneous
  Country: US (occurrence: US)
  Receive Date: 20201216
  Receipt Date: 20201216
  Transmission Date: 20210114
  Serious: Yes (Death)
  Sender: FDA-Public Use
  Company Number: None

PATIENT
  Sex: Female

DRUGS (6)
  1. LORAZEPAM. [Concomitant]
     Active Substance: LORAZEPAM
  2. PANTOPRAZOLE [Concomitant]
     Active Substance: PANTOPRAZOLE
  3. NEOMYCIN. [Concomitant]
     Active Substance: NEOMYCIN
  4. VERZENIO [Suspect]
     Active Substance: ABEMACICLIB
     Indication: BREAST CANCER FEMALE
     Dosage: ?          OTHER DOSE:1 TAB;?
     Route: 048
     Dates: start: 20200611, end: 20201113
  5. AMLOD/BENAZP [Concomitant]
  6. METRONIDAZOL [Concomitant]
     Active Substance: METRONIDAZOLE

REACTIONS (1)
  - Death [None]
